FAERS Safety Report 7247883-8 (Version None)
Quarter: 2011Q1

REPORT INFORMATION
  Report Type: 
  Country: None (occurrence: None)
  Receive Date: 20110127
  Receipt Date: 20110126
  Transmission Date: 20110831
  Serious: Yes (Other)
  Sender: FDA-Public Use
  Company Number: FR-PFIZER INC-2010168063

PATIENT
  Age: 79 Year
  Sex: Female

DRUGS (2)
  1. CEFPODOXIME PROXETIL [Suspect]
     Dosage: 100 MG, UNK
     Route: 048
     Dates: start: 20101221, end: 20101222
  2. CEFPODOXIME PROXETIL [Suspect]
     Indication: BRONCHITIS
     Dosage: 100 MG, UNK
     Route: 048
     Dates: start: 20101029, end: 20101106

REACTIONS (2)
  - BLOOD URINE PRESENT [None]
  - RECTAL HAEMORRHAGE [None]
